FAERS Safety Report 19389595 (Version 1)
Quarter: 2021Q2

REPORT INFORMATION
  Report Type: Spontaneous
  Country: US (occurrence: US)
  Receive Date: 20210608
  Receipt Date: 20210608
  Transmission Date: 20210717
  Serious: No
  Sender: FDA-Public Use
  Company Number: US-PFIZER INC-2021285543

PATIENT
  Age: 70 Year
  Sex: Female
  Weight: 85.28 kg

DRUGS (1)
  1. IBRANCE [Suspect]
     Active Substance: PALBOCICLIB
     Indication: NEOPLASM MALIGNANT
     Dosage: 125 MG, CYCLIC (ONE EVERY DAY FOR THREE WEEKS AND OFF FOR ONE WEEK)
     Dates: start: 202101

REACTIONS (1)
  - Hypoaesthesia [Not Recovered/Not Resolved]
